FAERS Safety Report 7490212-5 (Version None)
Quarter: 2011Q2

REPORT INFORMATION
  Report Type: 
  Country: None (occurrence: None)
  Receive Date: 20110517
  Receipt Date: 20110517
  Transmission Date: 20111010
  Serious: Yes (Other)
  Sender: FDA-Public Use
  Company Number: None

PATIENT
  Age: 72 Year
  Sex: Male
  Weight: 68.0396 kg

DRUGS (2)
  1. VIBATIV [Suspect]
     Indication: CELLULITIS
     Dosage: 645MG ONCE DAILY IV DRIP
     Route: 041
     Dates: start: 20110414, end: 20110512
  2. VIBATIV [Suspect]
     Indication: CELLULITIS
     Dosage: 750MG ONCE DAILY IV DRIP
     Route: 041
     Dates: start: 20110411, end: 20110414

REACTIONS (4)
  - MACULAR DEGENERATION [None]
  - HEADACHE [None]
  - DISEASE PROGRESSION [None]
  - NAUSEA [None]
